FAERS Safety Report 10441428 (Version 1)
Quarter: 2014Q3

REPORT INFORMATION
  Report Type: Spontaneous
  Country: DK (occurrence: DE)
  Receive Date: 20140909
  Receipt Date: 20140909
  Transmission Date: 20150326
  Serious: Yes (Life-Threatening, Hospitalization, Congenital Anomaly)
  Sender: FDA-Public Use
  Company Number: DE-FRI-1000070491

PATIENT
  Age: 0 Year
  Sex: Female
  Weight: 3 kg

DRUGS (3)
  1. CITALOPRAM [Suspect]
     Active Substance: CITALOPRAM HYDROBROMIDE
     Dosage: 40 MG
     Route: 064
     Dates: start: 20130413, end: 20140108
  2. DIAZEPAM. [Concomitant]
     Active Substance: DIAZEPAM
     Route: 064
  3. FEMIBION [Concomitant]
     Active Substance: VITAMINS
     Route: 064

REACTIONS (9)
  - Shone complex [Recovered/Resolved with Sequelae]
  - Ventricular septal defect [Recovered/Resolved with Sequelae]
  - Atrial septal defect [Recovered/Resolved with Sequelae]
  - Coarctation of the aorta [Recovered/Resolved with Sequelae]
  - Congenital mitral valve stenosis [Unknown]
  - Congenital aortic anomaly [Recovered/Resolved with Sequelae]
  - Congenital pulmonary hypertension [Unknown]
  - Neonatal respiratory distress syndrome [Recovered/Resolved]
  - Foetal exposure during pregnancy [Recovered/Resolved with Sequelae]

NARRATIVE: CASE EVENT DATE: 20130413
